FAERS Safety Report 21314315 (Version 1)
Quarter: 2022Q3

REPORT INFORMATION
  Report Type: Spontaneous
  Country: US (occurrence: None)
  Receive Date: 20220909
  Receipt Date: 20220909
  Transmission Date: 20221027
  Serious: No
  Sender: FDA-Public Use
  Company Number: US-ARIS GLOBAL-202110-1768

PATIENT
  Age: 81 Year
  Sex: Female

DRUGS (10)
  1. OXERVATE [Suspect]
     Active Substance: CENEGERMIN-BKBJ
     Indication: Neurotrophic keratopathy
     Route: 047
  2. VANCOMYCIN [Concomitant]
     Active Substance: VANCOMYCIN
     Dosage: HOURLY
  3. VANCOMYCIN [Concomitant]
     Active Substance: VANCOMYCIN
  4. VANCOMYCIN [Concomitant]
     Active Substance: VANCOMYCIN
  5. GENTAMICIN [Concomitant]
     Active Substance: GENTAMICIN
  6. VALACYCLOVIR [Concomitant]
     Active Substance: VALACYCLOVIR HYDROCHLORIDE
     Route: 048
  7. MOXIFLOXACIN [Concomitant]
     Active Substance: MOXIFLOXACIN
     Route: 061
  8. FLUOROMETHOLONE [Concomitant]
     Active Substance: FLUOROMETHOLONE
  9. COMBIGAN [Concomitant]
     Active Substance: BRIMONIDINE TARTRATE\TIMOLOL MALEATE
  10. LATANOPROST [Concomitant]
     Active Substance: LATANOPROST

REACTIONS (1)
  - Corneal deposits [Not Recovered/Not Resolved]
